FAERS Safety Report 5884546-5 (Version None)
Quarter: 2008Q3

REPORT INFORMATION
  Report Type: 
  Country: None (occurrence: None)
  Receive Date: 20080916
  Receipt Date: 20080908
  Transmission Date: 20090109
  Serious: Yes (Other)
  Sender: FDA-Public Use
  Company Number: PHHY2008FR20884

PATIENT
  Age: 91 Year
  Sex: Female

DRUGS (2)
  1. EXELON [Suspect]
     Dosage: 1.5 MG, BID
  2. EXELON [Suspect]
     Dosage: 1.5 MG, QD

REACTIONS (2)
  - BRADYCARDIA [None]
  - MALAISE [None]
